FAERS Safety Report 24858527 (Version 1)
Quarter: 2025Q1

REPORT INFORMATION
  Report Type: Report from Study
  Country: US (occurrence: US)
  Receive Date: 20250117
  Receipt Date: 20250117
  Transmission Date: 20250409
  Serious: No
  Sender: ACCORD
  Company Number: US-Accord-446303

PATIENT
  Age: 34 Year
  Sex: Male
  Weight: 127.01 kg

DRUGS (1)
  1. CLOZAPINE [Suspect]
     Active Substance: CLOZAPINE
     Indication: Schizophrenia
     Dosage: 300MG (THREE, 100MG TABLETS), BY MOUTH/DAILY
     Route: 048

REACTIONS (3)
  - Pyrexia [Unknown]
  - Headache [Unknown]
  - COVID-19 [Unknown]

NARRATIVE: CASE EVENT DATE: 20240903
